FAERS Safety Report 18822494 (Version 5)
Quarter: 2022Q1

REPORT INFORMATION
  Report Type: Report from Study
  Country: NL (occurrence: NL)
  Receive Date: 20210202
  Receipt Date: 20220214
  Transmission Date: 20220423
  Serious: Yes (Other)
  Sender: FDA-Public Use
  Company Number: NL-ABBVIE-19S-114-2659431-00

PATIENT
  Age: 80 Year
  Sex: Male

DRUGS (14)
  1. CARBIDOPA\LEVODOPA [Suspect]
     Active Substance: CARBIDOPA\LEVODOPA
     Indication: Parkinson^s disease
     Dosage: MD: 5.0, CD: 3.1, ED: 1.5, CND: 1.6, END: 1.5
     Route: 050
     Dates: start: 20180423
  2. CARBIDOPA\LEVODOPA [Suspect]
     Active Substance: CARBIDOPA\LEVODOPA
     Dosage: CONTINUOUS DOSE INCREASED WITH 0.1ML TO 3.2ML.
     Route: 050
  3. CARBIDOPA\LEVODOPA [Suspect]
     Active Substance: CARBIDOPA\LEVODOPA
     Dosage: MD 5.0?CD 3.3?ED 1.5?NIGHT CD 14.6?NIGHT ED 1.5
     Route: 050
  4. CARBIDOPA\LEVODOPA [Suspect]
     Active Substance: CARBIDOPA\LEVODOPA
     Dosage: MDD 5,0 ML; CDD 3,4 ML/HOUR; EDD 1,5 ML; CDN 1,6 ML/HOUR; EDN?1,3 ML
     Route: 050
  5. CARBIDOPA\LEVODOPA [Suspect]
     Active Substance: CARBIDOPA\LEVODOPA
     Dosage: MD 5.0ML; CD 3.6ML/H; ED 1.5ML; CND 1.6 ML/H; END 1.3 ML
     Route: 050
  6. CARBIDOPA\LEVODOPA [Suspect]
     Active Substance: CARBIDOPA\LEVODOPA
     Dosage: MD 5.0ML; CD 3.4ML/H; ED 1.5ML; CND 1.6 ML/H; END 1.3 ML
     Route: 050
  7. CARBIDOPA\LEVODOPA [Suspect]
     Active Substance: CARBIDOPA\LEVODOPA
     Dosage: MD: 5.0ML; CD: 3.6ML/H; ED: 1.5ML; CND: 1.8ML/H; END: 1.3ML
     Route: 050
  8. DUTASTERIDE\TAMSULOSIN [Concomitant]
     Active Substance: DUTASTERIDE\TAMSULOSIN
     Indication: Product used for unknown indication
     Dosage: 0.5/0.4 MG
     Route: 065
  9. RIVASTIGMINE [Concomitant]
     Active Substance: RIVASTIGMINE
     Indication: Product used for unknown indication
     Dosage: FORM OF ADMINISTRATION :TRANSDERMAL PATCH
     Route: 062
  10. MIRTAZAPINE [Concomitant]
     Active Substance: MIRTAZAPINE
     Indication: Product used for unknown indication
     Route: 065
  11. CARBOHYDRATES\FATTY ACIDS\MINERALS\PROTEIN\VITAMINS [Concomitant]
     Active Substance: CARBOHYDRATES\FATTY ACIDS\MINERALS\PROTEIN\VITAMINS
     Indication: Product used for unknown indication
     Dosage: 2 PACKETS PER DAY
     Route: 065
  12. VENLAFAXINE [Concomitant]
     Active Substance: VENLAFAXINE HYDROCHLORIDE
     Indication: Parkinson^s disease
     Route: 065
  13. MOVICOLON [Concomitant]
     Active Substance: POLYETHYLENE GLYCOL 3350\POTASSIUM CHLORIDE\SODIUM BICARBONATE\SODIUM CHLORIDE
     Indication: Product used for unknown indication
     Route: 065
  14. CLOZAPINE [Concomitant]
     Active Substance: CLOZAPINE
     Indication: Memory impairment
     Dosage: INCREASED
     Route: 065

REACTIONS (57)
  - Benign neoplasm [Not Recovered/Not Resolved]
  - Insomnia [Recovered/Resolved]
  - Mobility decreased [Not Recovered/Not Resolved]
  - Dyschezia [Not Recovered/Not Resolved]
  - Fluid imbalance [Not Recovered/Not Resolved]
  - Anger [Not Recovered/Not Resolved]
  - Weight increased [Recovered/Resolved]
  - Stubbornness [Not Recovered/Not Resolved]
  - Memory impairment [Not Recovered/Not Resolved]
  - Fibroma [Recovered/Resolved]
  - Product use issue [Not Recovered/Not Resolved]
  - General physical health deterioration [Recovered/Resolved]
  - Fluid intake reduced [Not Recovered/Not Resolved]
  - Dysstasia [Not Recovered/Not Resolved]
  - Fluid intake reduced [Not Recovered/Not Resolved]
  - Balance disorder [Not Recovered/Not Resolved]
  - Urinary tract infection [Unknown]
  - Nocturia [Recovered/Resolved]
  - Apraxia [Not Recovered/Not Resolved]
  - Fibroma [Not Recovered/Not Resolved]
  - Delusion [Not Recovered/Not Resolved]
  - Fatigue [Recovered/Resolved]
  - Malaise [Not Recovered/Not Resolved]
  - Fall [Recovered/Resolved]
  - Weight decreased [Recovered/Resolved]
  - Asthenia [Not Recovered/Not Resolved]
  - Gait disturbance [Not Recovered/Not Resolved]
  - Hallucination [Not Recovered/Not Resolved]
  - Freezing phenomenon [Not Recovered/Not Resolved]
  - Dyskinesia [Recovered/Resolved]
  - Muscle rigidity [Not Recovered/Not Resolved]
  - Confusional state [Not Recovered/Not Resolved]
  - Stoma site erythema [Recovering/Resolving]
  - Dyskinesia [Not Recovered/Not Resolved]
  - Decreased appetite [Not Recovered/Not Resolved]
  - Weight decreased [Recovered/Resolved]
  - Incontinence [Not Recovered/Not Resolved]
  - Disorientation [Not Recovered/Not Resolved]
  - Memory impairment [Not Recovered/Not Resolved]
  - Bradykinesia [Unknown]
  - Hallucination, visual [Not Recovered/Not Resolved]
  - Middle insomnia [Not Recovered/Not Resolved]
  - Fatigue [Not Recovered/Not Resolved]
  - Drug ineffective [Not Recovered/Not Resolved]
  - General physical health deterioration [Not Recovered/Not Resolved]
  - Speech disorder [Not Recovered/Not Resolved]
  - Bradykinesia [Not Recovered/Not Resolved]
  - Memory impairment [Not Recovered/Not Resolved]
  - Dementia Alzheimer^s type [Not Recovered/Not Resolved]
  - On and off phenomenon [Not Recovered/Not Resolved]
  - General physical health deterioration [Unknown]
  - Dyskinesia [Not Recovered/Not Resolved]
  - Fall [Not Recovered/Not Resolved]
  - Nocturia [Not Recovered/Not Resolved]
  - Incontinence [Not Recovered/Not Resolved]
  - Fatigue [Not Recovered/Not Resolved]
  - Confusional state [Not Recovered/Not Resolved]

NARRATIVE: CASE EVENT DATE: 20210501
